FAERS Safety Report 4551603-5 (Version None)
Quarter: 2005Q1

REPORT INFORMATION
  Report Type: 
  Country: None (occurrence: None)
  Receive Date: 20050112
  Receipt Date: 20041230
  Transmission Date: 20050727
  Serious: Yes (Hospitalization, Other)
  Sender: FDA-Public Use
  Company Number: HQWYE207517JUL04

PATIENT
  Age: 43 Year
  Sex: Female
  Weight: 61.29 kg

DRUGS (2)
  1. PREMPRO (CONJUGATED ESTROGENS/MEDDROXYPROGESTERONE ACETATE, TABLET, UN [Suspect]
     Indication: MENOPAUSAL SYMPTOMS
     Dosage: ORAL
     Route: 048
  2. PREMARIN [Suspect]
     Indication: MENOPAUSAL SYMPTOMS
     Dosage: ORAL
     Route: 048

REACTIONS (10)
  - ALOPECIA [None]
  - ASTHENIA [None]
  - BONE NEOPLASM MALIGNANT [None]
  - BREAST CANCER FEMALE [None]
  - DEPRESSION [None]
  - LUNG NEOPLASM MALIGNANT [None]
  - NERVE INJURY [None]
  - PAIN [None]
  - RADIATION SKIN INJURY [None]
  - SCAR [None]
